FAERS Safety Report 25459704 (Version 3)
Quarter: 2025Q3

REPORT INFORMATION
  Report Type: Spontaneous
  Country: CN (occurrence: CN)
  Receive Date: 20250620
  Receipt Date: 20250701
  Transmission Date: 20251021
  Serious: Yes (Other)
  Sender: JOHNSON AND JOHNSON
  Company Number: CN-BAYER-2025A081498

PATIENT
  Age: 68 Year
  Sex: Female

DRUGS (1)
  1. RIVAROXABAN [Suspect]
     Active Substance: RIVAROXABAN
     Indication: Anticoagulant therapy
     Route: 048
     Dates: start: 202304

REACTIONS (3)
  - Tumour haemorrhage [Recovered/Resolved]
  - Aorto-cardiac fistula [Recovered/Resolved]
  - Tumour rupture [Recovered/Resolved]

NARRATIVE: CASE EVENT DATE: 20230101
